FAERS Safety Report 9413143 (Version 4)
Quarter: 2013Q4

REPORT INFORMATION
  Report Type: Spontaneous
  Country: NL (occurrence: None)
  Receive Date: 20130501
  Receipt Date: 20131011
  Transmission Date: 20140711
  Serious: Yes (Hospitalization)
  Sender: FDA-Public Use
  Company Number: GAM-103-13-NL

PATIENT
  Age: 60 Year
  Sex: Female

DRUGS (1)
  1. OCTAGAM [Suspect]
     Indication: HYPOGAMMAGLOBULINAEMIA
     Dosage: 35 G (1X 21/D)?
     Route: 042
     Dates: start: 20130321, end: 20130321

REACTIONS (7)
  - Myelodysplastic syndrome [None]
  - Increased tendency to bruise [None]
  - Anxiety [None]
  - Panic attack [None]
  - Hepatic enzyme increased [None]
  - Platelet count decreased [None]
  - White blood cell count decreased [None]
